FAERS Safety Report 23604900 (Version 1)
Quarter: 2024Q1

REPORT INFORMATION
  Report Type: Spontaneous
  Country: FR (occurrence: FR)
  Receive Date: 20240307
  Receipt Date: 20240307
  Transmission Date: 20240410
  Serious: Yes (Other)
  Sender: FDA-Public Use
  Company Number: FR-SUN PHARMACEUTICAL INDUSTRIES LTD-2024RR-435217

PATIENT
  Age: 30 Year
  Sex: Female

DRUGS (2)
  1. OLANZAPINE [Suspect]
     Active Substance: OLANZAPINE
     Indication: Affective disorder
     Dosage: 1 DOSAGE FORM, DAILY, NR
     Route: 048
     Dates: start: 2020
  2. DESOGESTREL [Suspect]
     Active Substance: DESOGESTREL
     Indication: Contraception
     Dosage: 0.08 MILLIGRAM, DAILY, NR
     Route: 048
     Dates: start: 2023

REACTIONS (1)
  - Galactorrhoea [Not Recovered/Not Resolved]

NARRATIVE: CASE EVENT DATE: 20230701
